FAERS Safety Report 8303778 (Version 2)
Quarter: 2013Q1

REPORT INFORMATION
  Report Type: Report from Study
  Country: US (occurrence: US)
  Receive Date: 20111220
  Receipt Date: 20130325
  Transmission Date: 20140127
  Serious: Yes (Death, Other)
  Sender: FDA-Public Use
  Company Number: US-CELGENEUS-163-21660-11121024

PATIENT
  Sex: 0

DRUGS (6)
  1. ABRAXANE [Suspect]
     Indication: SQUAMOUS CELL CARCINOMA OF HEAD AND NECK
     Dosage: 20 MILLIGRAM/SQ. METER
     Route: 065
  2. ABRAXANE [Suspect]
     Dosage: 30 MILLIGRAM/SQ. METER
     Route: 065
  3. ABRAXANE [Suspect]
     Dosage: 40 MILLIGRAM/SQ. METER
     Route: 065
  4. ABRAXANE [Suspect]
     Dosage: 50 MILLIGRAM/SQ. METER
     Route: 065
  5. CARBOPLATIN [Suspect]
     Indication: SQUAMOUS CELL CARCINOMA OF HEAD AND NECK
     Route: 065
  6. IMRT [Suspect]
     Indication: SQUAMOUS CELL CARCINOMA OF HEAD AND NECK
     Route: 065

REACTIONS (4)
  - Squamous cell carcinoma of head and neck [Fatal]
  - Dysphagia [Unknown]
  - Mucosal inflammation [Unknown]
  - Dermatitis [Unknown]
